FAERS Safety Report 10932717 (Version 1)
Quarter: 2015Q1

REPORT INFORMATION
  Report Type: Spontaneous
  Country: US (occurrence: None)
  Receive Date: 20150319
  Receipt Date: 20150319
  Transmission Date: 20150721
  Serious: Yes (Hospitalization)
  Sender: FDA-Public Use
  Company Number: None

PATIENT
  Age: 89 Year
  Sex: Male
  Weight: 59.3 kg

DRUGS (1)
  1. WARFARIN [Suspect]
     Active Substance: WARFARIN
     Indication: ATRIAL FIBRILLATION
     Route: 048
     Dates: start: 20140430, end: 20141025

REACTIONS (6)
  - International normalised ratio increased [None]
  - Gastrointestinal haemorrhage [None]
  - Varices oesophageal [None]
  - Haemoglobin decreased [None]
  - Large intestinal ulcer [None]
  - Rectal haemorrhage [None]

NARRATIVE: CASE EVENT DATE: 20141025
